FAERS Safety Report 14871643 (Version 1)
Quarter: 2018Q2

REPORT INFORMATION
  Report Type: Spontaneous
  Country: CH (occurrence: CH)
  Receive Date: 20180509
  Receipt Date: 20180509
  Transmission Date: 20180711
  Serious: Yes (Other)
  Sender: FDA-Public Use
  Company Number: CH-BAYER-2018-031636

PATIENT
  Age: 65 Year
  Sex: Male

DRUGS (13)
  1. CALCIMAGON-D 3 [Concomitant]
     Dosage: 1
  2. SORTIS [Concomitant]
     Active Substance: ATORVASTATIN
     Dosage: DAILY DOSE 40 MG
  3. LUCRIN [Concomitant]
     Active Substance: LEUPROLIDE ACETATE
  4. CARDIAX [Concomitant]
     Dosage: DAILY DOSE 100 MG
  5. XGEVA [Concomitant]
     Active Substance: DENOSUMAB
  6. DAFALGAN [Concomitant]
     Active Substance: ACETAMINOPHEN
     Dosage: UNK
  7. VALSARTAN. [Concomitant]
     Active Substance: VALSARTAN
     Dosage: UNK
  8. CONCOR [Concomitant]
     Active Substance: BISOPROLOL FUMARATE
     Dosage: UNK
  9. XOFIGO [Suspect]
     Active Substance: RADIUM RA-223 DICHLORIDE
     Indication: METASTASES TO BONE
     Dosage: UNK
     Route: 042
     Dates: start: 20171227, end: 20171227
  10. XTANDI [Concomitant]
     Active Substance: ENZALUTAMIDE
     Dosage: 40 MG, QID
  11. XOFIGO [Suspect]
     Active Substance: RADIUM RA-223 DICHLORIDE
     Indication: PROSTATE CANCER STAGE IV
     Dosage: UNK
     Route: 042
     Dates: start: 20171128, end: 20171128
  12. XOFIGO [Suspect]
     Active Substance: RADIUM RA-223 DICHLORIDE
     Indication: PROSTATE CANCER STAGE IV
     Dosage: UNK
     Route: 042
     Dates: start: 20180124, end: 20180124
  13. ALLOPURINOL. [Concomitant]
     Active Substance: ALLOPURINOL
     Dosage: DAILY DOSE 300 MG

REACTIONS (3)
  - Pancytopenia [Not Recovered/Not Resolved]
  - Prostate cancer metastatic [None]
  - Haemoglobin decreased [Not Recovered/Not Resolved]

NARRATIVE: CASE EVENT DATE: 2017
